FAERS Safety Report 4268796-X (Version None)
Quarter: 2004Q1

REPORT INFORMATION
  Report Type: 
  Country: None (occurrence: None)
  Receive Date: 20040112
  Receipt Date: 20040112
  Transmission Date: 20041129
  Serious: Yes (Hospitalization)
  Sender: FDA-Public Use
  Company Number: None

PATIENT
  Age: 63 Year
  Sex: Female
  Weight: 97.977 kg

DRUGS (12)
  1. TAXOTERE [Suspect]
     Indication: LIPOSARCOMA METASTATIC
     Dosage: TAXOTERE 60 MG/M2 = 119 MG
     Route: 042
     Dates: start: 20031105
  2. TAXOTERE [Suspect]
     Indication: LIPOSARCOMA METASTATIC
     Dosage: TAXOTERE 60 MG/M2 = 119 MG
     Route: 042
     Dates: start: 20031126
  3. IMATINIB 400 MG PO DAILY 10/29/03 -} 12/16/03 INCLUSIVE [Suspect]
     Dosage: IMATINIB 400 MG PO QD
     Route: 048
     Dates: start: 20031029, end: 20031216
  4. COREG [Concomitant]
  5. LISINOPRIL [Concomitant]
  6. LANOXIN [Concomitant]
  7. FUROSEMIDE [Concomitant]
  8. K-DUR 10 [Concomitant]
  9. PREMARIN [Concomitant]
  10. ARANESP [Concomitant]
  11. OXYCODONE HCL [Concomitant]
  12. COMPAZINE [Concomitant]

REACTIONS (5)
  - ANAEMIA [None]
  - DYSPNOEA [None]
  - HYPOXIA [None]
  - PNEUMONIA [None]
  - PYREXIA [None]
